FAERS Safety Report 24223146 (Version 2)
Quarter: 2024Q3

REPORT INFORMATION
  Report Type: Spontaneous
  Country: GB (occurrence: GB)
  Receive Date: 20240819
  Receipt Date: 20240925
  Transmission Date: 20241016
  Serious: Yes (Other)
  Sender: MYLAN
  Company Number: GB-MYLANLABS-2024M1075981

PATIENT
  Sex: Female

DRUGS (1)
  1. CLOZARIL [Suspect]
     Active Substance: CLOZAPINE
     Indication: Schizophrenia
     Dosage: UNK
     Route: 048
     Dates: start: 20240628, end: 20240806

REACTIONS (4)
  - Pulmonary embolism [Unknown]
  - Adverse drug reaction [Unknown]
  - Poor venous access [Unknown]
  - Fibrin D dimer increased [Unknown]
